FAERS Safety Report 9554060 (Version 2)
Quarter: 2013Q3

REPORT INFORMATION
  Report Type: Spontaneous
  Country: PL (occurrence: PL)
  Receive Date: 20130925
  Receipt Date: 20130925
  Transmission Date: 20140515
  Serious: Yes (Congenital Anomaly)
  Sender: FDA-Public Use
  Company Number: PL-ELI_LILLY_AND_COMPANY-PL200604004670

PATIENT
  Age: 1 Day
  Sex: 0

DRUGS (2)
  1. HUMULIN REGULAR [Suspect]
     Route: 064
  2. HUMULIN REGULAR [Suspect]
     Route: 064

REACTIONS (2)
  - Foetal malformation [Unknown]
  - Foetal exposure during pregnancy [Unknown]
